FAERS Safety Report 9925370 (Version 1)
Quarter: 2014Q1

REPORT INFORMATION
  Report Type: Spontaneous
  Country: ES (occurrence: ES)
  Receive Date: 20140226
  Receipt Date: 20140226
  Transmission Date: 20141002
  Serious: Yes (Hospitalization)
  Sender: FDA-Public Use
  Company Number: ES-PFIZER INC-2014053735

PATIENT
  Age: 56 Year
  Sex: Male

DRUGS (2)
  1. MORPHINE SULFATE [Suspect]
     Indication: PAIN
     Dosage: 60 MG, 2X/DAY
     Route: 048
     Dates: start: 20110401, end: 20110829
  2. MORPHINE SULFATE [Suspect]
     Dosage: 100 MG, 2X/DAY
     Route: 048
     Dates: start: 20110829, end: 20110908

REACTIONS (3)
  - Confusional state [Recovered/Resolved]
  - Abnormal behaviour [Unknown]
  - Anxiety [Unknown]
